FAERS Safety Report 6379289-8 (Version None)
Quarter: 2009Q3

REPORT INFORMATION
  Report Type: 
  Country: None (occurrence: None)
  Receive Date: 20090923
  Receipt Date: 20090923
  Transmission Date: 20100115
  Serious: Yes (Life-Threatening)
  Sender: FDA-Public Use
  Company Number: None

PATIENT
  Age: 65 Year
  Sex: Female

DRUGS (10)
  1. BUPIVACAINE [Suspect]
     Indication: PAIN
     Dosage: 0.05% (6/4/10) PRN
     Dates: start: 20081103, end: 20081105
  2. PERCOCET [Suspect]
     Indication: PAIN
     Dosage: 2 TABS PO X1
     Route: 048
     Dates: start: 20081105
  3. SENNA [Concomitant]
  4. COLACE [Concomitant]
  5. METOPROLOL TARTRATE [Concomitant]
  6. TORADOL [Concomitant]
  7. NICOTINE [Concomitant]
  8. ADVAIR DISKUS 100/50 [Concomitant]
  9. ANCEF [Concomitant]
  10. FENTANYL CITRATE [Suspect]

REACTIONS (1)
  - UNRESPONSIVE TO STIMULI [None]
